FAERS Safety Report 25898474 (Version 3)
Quarter: 2025Q4

REPORT INFORMATION
  Report Type: Spontaneous
  Country: AU (occurrence: AU)
  Receive Date: 20251009
  Receipt Date: 20251226
  Transmission Date: 20260117
  Serious: Yes (Hospitalization, Other)
  Sender: ASTELLAS
  Company Number: AU-ASTELLAS-2025-AER-055171

PATIENT
  Age: 58 Year
  Sex: Male

DRUGS (1)
  1. ENFORTUMAB VEDOTIN [Suspect]
     Active Substance: ENFORTUMAB VEDOTIN
     Indication: Product used for unknown indication
     Dosage: REPORTED AS EV X 2 DOSES
     Route: 065
     Dates: start: 202310

REACTIONS (2)
  - Cellulitis [Unknown]
  - Dermatitis bullous [Unknown]
